FAERS Safety Report 25048544 (Version 3)
Quarter: 2025Q2

REPORT INFORMATION
  Report Type: Report from Study
  Country: US (occurrence: US)
  Receive Date: 20250307
  Receipt Date: 20250623
  Transmission Date: 20250717
  Serious: Yes (Other)
  Sender: SUNOVION
  Company Number: US-SMPA-2025SPA002546

PATIENT

DRUGS (2)
  1. ORGOVYX [Suspect]
     Active Substance: RELUGOLIX
     Indication: Prostate cancer
     Route: 048
  2. ORGOVYX [Suspect]
     Active Substance: RELUGOLIX
     Dosage: 120 MG, QD
     Route: 048
     Dates: start: 20250207

REACTIONS (5)
  - Prostate cancer [Unknown]
  - Disturbance in attention [Unknown]
  - Brain fog [Unknown]
  - Night sweats [Unknown]
  - Hot flush [Unknown]
